FAERS Safety Report 19158510 (Version 1)
Quarter: 2021Q2

REPORT INFORMATION
  Report Type: Spontaneous
  Country: US (occurrence: US)
  Receive Date: 20210420
  Receipt Date: 20210420
  Transmission Date: 20210717
  Serious: No
  Sender: FDA-Public Use
  Company Number: US-TEVA-2021-US-1895083

PATIENT
  Age: 58 Year
  Sex: Female
  Weight: 63.05 kg

DRUGS (6)
  1. LITHIUM CARBONATE 300 MG [Concomitant]
     Active Substance: LITHIUM CARBONATE
     Dosage: TWO IN THE MORNING
  2. AUSTEDO [Suspect]
     Active Substance: DEUTETRABENAZINE
     Dosage: 12 MILLIGRAM DAILY; 12 MG ONCE A DAY IN THE MORNING FOR THE PAST 4?5 DAYS
     Route: 065
  3. AUSTEDO [Suspect]
     Active Substance: DEUTETRABENAZINE
     Dosage: 36 MILLIGRAM DAILY; 12 MG IN THE MORNING AND 24 MG AT NIGHT DAILY
     Route: 065
  4. AUSTEDO [Suspect]
     Active Substance: DEUTETRABENAZINE
     Indication: TARDIVE DYSKINESIA
     Route: 065
     Dates: start: 2018
  5. WELLBUTRIN 450 MG [Concomitant]
     Dosage: IN THE MORNING
  6. BOTOX [Concomitant]
     Active Substance: ONABOTULINUMTOXINA
     Indication: MUSCLE SPASMS

REACTIONS (4)
  - Dyskinesia [Unknown]
  - Nasal septal operation [Unknown]
  - Intentional product misuse [Unknown]
  - Tinnitus [Unknown]

NARRATIVE: CASE EVENT DATE: 2021
